FAERS Safety Report 24796429 (Version 1)
Quarter: 2025Q1

REPORT INFORMATION
  Report Type: Spontaneous
  Country: SK (occurrence: SK)
  Receive Date: 20250101
  Receipt Date: 20250101
  Transmission Date: 20250409
  Serious: Yes (Death, Other)
  Sender: ACCORD
  Company Number: None

PATIENT
  Sex: Female

DRUGS (9)
  1. CAPECITABINE [Suspect]
     Active Substance: CAPECITABINE
     Indication: Metastases to lung
  2. DOCETAXEL [Suspect]
     Active Substance: DOCETAXEL
     Indication: Metastases to lung
  3. EVEROLIMUS [Suspect]
     Active Substance: EVEROLIMUS
     Indication: Metastases to lung
  4. FULVESTRANT [Suspect]
     Active Substance: FULVESTRANT
     Indication: Metastases to lung
     Dates: start: 20221130
  5. VINORELBINE [Suspect]
     Active Substance: VINORELBINE TARTRATE
     Indication: Metastases to lung
  6. RIBOCICLIB [Suspect]
     Active Substance: RIBOCICLIB
     Indication: Metastases to lung
     Dates: start: 20221130, end: 20240301
  7. EXEMESTANE [Suspect]
     Active Substance: EXEMESTANE
     Indication: Metastases to lung
  8. DENOSUMAB [Suspect]
     Active Substance: DENOSUMAB
     Indication: Metastases to lung
     Dates: start: 20221130
  9. PACLITAXEL [Concomitant]
     Active Substance: PACLITAXEL
     Indication: Product used for unknown indication

REACTIONS (9)
  - Metastases to lung [Fatal]
  - Disease progression [Fatal]
  - Ascites [Unknown]
  - Enterocolitis [Unknown]
  - Leukopenia [Unknown]
  - Anaemia [Unknown]
  - Dyspnoea [Unknown]
  - Dehydration [Unknown]
  - Drug ineffective [Unknown]
